FAERS Safety Report 8495689-4 (Version None)
Quarter: 2012Q3

REPORT INFORMATION
  Report Type: 
  Country: None (occurrence: None)
  Receive Date: 20120709
  Receipt Date: 20120706
  Transmission Date: 20120928
  Serious: No
  Sender: FDA-Public Use
  Company Number: US-PFIZER INC-2012162744

PATIENT
  Sex: Female
  Weight: 81.633 kg

DRUGS (5)
  1. CHANTIX [Suspect]
     Dosage: 0.5 MG, DAILY
     Dates: start: 20120601
  2. CHANTIX [Suspect]
     Indication: SMOKING CESSATION THERAPY
     Dosage: UNK
  3. CHANTIX [Suspect]
     Dosage: 1 MG, 2X/DAY
  4. QUINAPRIL [Concomitant]
     Indication: BLOOD PRESSURE ABNORMAL
     Dosage: 40 MG, DAILY
  5. CHANTIX [Suspect]
     Dosage: 1 MG, DAILY
     Dates: start: 20120101

REACTIONS (1)
  - THROAT IRRITATION [None]
